FAERS Safety Report 9768361 (Version 1)
Quarter: 2013Q4

REPORT INFORMATION
  Report Type: Spontaneous
  Country: US (occurrence: US)
  Receive Date: 20131217
  Receipt Date: 20131217
  Transmission Date: 20140711
  Serious: No
  Sender: FDA-Public Use
  Company Number: US-009507513-1312USA002418

PATIENT
  Age: 50 Year
  Sex: Female

DRUGS (1)
  1. ISENTRESS [Suspect]
     Indication: HIV INFECTION
     Dosage: 100 MG, BID
     Route: 048
     Dates: end: 2013

REACTIONS (5)
  - Adverse event [Unknown]
  - Headache [Recovering/Resolving]
  - Psychotic disorder [Unknown]
  - Incorrect dose administered [Unknown]
  - Wrong technique in drug usage process [Unknown]
